FAERS Safety Report 20809834 (Version 1)
Quarter: 2022Q2

REPORT INFORMATION
  Report Type: Spontaneous
  Country: DE (occurrence: DE)
  Receive Date: 20220510
  Receipt Date: 20220510
  Transmission Date: 20220721
  Serious: Yes (Other)
  Sender: FDA-Public Use
  Company Number: DE-NOVARTISPH-NVSC2022DE106488

PATIENT
  Sex: Male

DRUGS (2)
  1. OXALIPLATIN [Suspect]
     Active Substance: OXALIPLATIN
     Indication: Product used for unknown indication
     Dosage: UNK
     Route: 065
  2. DEXTROSE [Suspect]
     Active Substance: DEXTROSE
     Indication: Product used for unknown indication
     Dosage: UNK (LOSUNG 250 IN 500 ML)
     Route: 065

REACTIONS (6)
  - Mucosal inflammation [Unknown]
  - Cardiovascular disorder [Unknown]
  - Muscle rigidity [Unknown]
  - Circulatory collapse [Unknown]
  - Dysarthria [Unknown]
  - Dyspnoea [Unknown]
